FAERS Safety Report 21051168 (Version 2)
Quarter: 2022Q3

REPORT INFORMATION
  Report Type: Spontaneous
  Country: US (occurrence: US)
  Receive Date: 20220707
  Receipt Date: 20220802
  Transmission Date: 20221026
  Serious: No
  Sender: FDA-Public Use
  Company Number: US-UNITED THERAPEUTICS-UNT-2022-012887

PATIENT
  Age: 67 Year
  Sex: Female

DRUGS (3)
  1. REMODULIN [Suspect]
     Active Substance: TREPROSTINIL
     Indication: Pulmonary arterial hypertension
     Dosage: UNK, CONTINUING
     Route: 058
     Dates: start: 20220601
  2. REMODULIN [Suspect]
     Active Substance: TREPROSTINIL
     Dosage: 0.0079 ?G/KG, CONTINUING
     Route: 058
     Dates: start: 202206
  3. REMODULIN [Suspect]
     Active Substance: TREPROSTINIL
     Dosage: 0.0089 ?G/KG, CONTINUING
     Route: 058
     Dates: start: 202206

REACTIONS (7)
  - Infusion site pain [Unknown]
  - Infusion site pruritus [Unknown]
  - Diarrhoea [Unknown]
  - Oedema [Unknown]
  - Catheter site haemorrhage [Unknown]
  - Device breakage [Unknown]
  - Swelling [Unknown]

NARRATIVE: CASE EVENT DATE: 20220601
